FAERS Safety Report 25382936 (Version 1)
Quarter: 2025Q2

REPORT INFORMATION
  Report Type: Spontaneous
  Country: US (occurrence: US)
  Receive Date: 20250602
  Receipt Date: 20250602
  Transmission Date: 20250717
  Serious: Yes (Other)
  Sender: Navitas Life Sciences Inc
  Company Number: US-ADVAGEN PHARMA LIMITED-ADGN-RB-2025-00021

PATIENT

DRUGS (2)
  1. CLONAZEPAM [Suspect]
     Active Substance: CLONAZEPAM
     Indication: Product used for unknown indication
     Route: 065
  2. CLONAZEPAM [Suspect]
     Active Substance: CLONAZEPAM
     Route: 065

REACTIONS (9)
  - Tunnel vision [Unknown]
  - Dissociation [Unknown]
  - Presyncope [Unknown]
  - Tachycardia [Unknown]
  - Anxiety [Unknown]
  - Nausea [Unknown]
  - Panic attack [Unknown]
  - Therapeutic response decreased [Unknown]
  - Product substitution issue [Unknown]
